FAERS Safety Report 11167719 (Version 1)
Quarter: 2015Q2

REPORT INFORMATION
  Report Type: Spontaneous
  Country: NO (occurrence: NO)
  Receive Date: 20150605
  Receipt Date: 20150605
  Transmission Date: 20150821
  Serious: Yes (Death)
  Sender: FDA-Public Use
  Company Number: NO-SA-2015SA074662

PATIENT
  Age: 76 Year
  Sex: Female

DRUGS (1)
  1. KLEXANE [Suspect]
     Active Substance: ENOXAPARIN
     Indication: PULMONARY EMBOLISM
     Route: 058
     Dates: start: 2015, end: 20150206

REACTIONS (7)
  - Haemoglobin decreased [Fatal]
  - Acute kidney injury [Fatal]
  - Anuria [Fatal]
  - Thoracic haemorrhage [Fatal]
  - Circulatory collapse [Fatal]
  - Condition aggravated [Fatal]
  - Hypotension [Fatal]

NARRATIVE: CASE EVENT DATE: 201502
